FAERS Safety Report 13300020 (Version 3)
Quarter: 2017Q2

REPORT INFORMATION
  Report Type: Spontaneous
  Country: US (occurrence: US)
  Receive Date: 20170306
  Receipt Date: 20170418
  Transmission Date: 20170830
  Serious: No
  Sender: FDA-Public Use
  Company Number: US-SHIRE-US201704706

PATIENT
  Age: 8 Year
  Sex: Male
  Weight: 24.36 kg

DRUGS (1)
  1. VYVANSE [Suspect]
     Active Substance: LISDEXAMFETAMINE DIMESYLATE
     Indication: ATTENTION DEFICIT/HYPERACTIVITY DISORDER
     Dosage: 10 MG, 1X/DAY:QD
     Route: 048
     Dates: start: 20170228, end: 20170228

REACTIONS (6)
  - Crying [Recovered/Resolved]
  - Adverse drug reaction [Recovered/Resolved]
  - Irritability [Recovered/Resolved]
  - Decreased appetite [Recovered/Resolved]
  - Depressed mood [Recovered/Resolved]
  - Anger [Recovered/Resolved]

NARRATIVE: CASE EVENT DATE: 20170228
